FAERS Safety Report 9553230 (Version 1)
Quarter: 2013Q3

REPORT INFORMATION
  Report Type: Spontaneous
  Country: US (occurrence: None)
  Receive Date: 20130724
  Receipt Date: 20130724
  Transmission Date: 20140515
  Serious: No
  Sender: FDA-Public Use
  Company Number: PHEH2013US008920

PATIENT
  Age: 77 Year
  Sex: Male

DRUGS (9)
  1. GLEEVEC (IMATINIB) [Suspect]
     Dates: end: 20130415
  2. FUROSEMIDE (FUROSEMIDE) [Concomitant]
  3. CARVEDILOL (CARVEDILOL) [Concomitant]
  4. SIMVASTATIN (SIMVASTATIN) [Concomitant]
  5. KLOR-CON (POTASSIUM CHLORIDE) [Concomitant]
  6. LISINOPRIL (LISINOPRIL) [Concomitant]
  7. FOLBIC (CYANOCOBALAMIN, FOLIC ACID, PYRIDOXINE HYDROCHLORIDE) [Concomitant]
  8. ALLOPURINOL (ALLOPURINOL) [Concomitant]
  9. CLOPIDOGREL (CLOPIDOGREL) [Concomitant]

REACTIONS (3)
  - White blood cell count increased [None]
  - Abdominal pain [None]
  - Drug ineffective [None]
